FAERS Safety Report 4298917-4 (Version None)
Quarter: 2004Q1

REPORT INFORMATION
  Report Type: 
  Country: None (occurrence: None)
  Receive Date: 20040126
  Receipt Date: 20031105
  Transmission Date: 20041129
  Serious: No
  Sender: FDA-Public Use
  Company Number: USA030948112

PATIENT
  Age: 9 Year
  Sex: Female
  Weight: 25 kg

DRUGS (2)
  1. STRATTERA [Suspect]
     Indication: ATTENTION DEFICIT/HYPERACTIVITY DISORDER
     Dosage: 25 MG/DAY
     Dates: start: 20030920
  2. STRATTERA [Suspect]
     Indication: DYSLEXIA
     Dosage: 25 MG/DAY
     Dates: start: 20030920

REACTIONS (9)
  - ANOREXIA [None]
  - CHAPPED LIPS [None]
  - DISTURBANCE IN ATTENTION [None]
  - DRUG INEFFECTIVE [None]
  - DYSGEUSIA [None]
  - FATIGUE [None]
  - RASH PRURITIC [None]
  - SOMNOLENCE [None]
  - WEIGHT DECREASED [None]
